FAERS Safety Report 13276710 (Version 1)
Quarter: 2017Q1

REPORT INFORMATION
  Report Type: Spontaneous
  Country: US (occurrence: US)
  Receive Date: 20170228
  Receipt Date: 20170228
  Transmission Date: 20170428
  Serious: Yes (Hospitalization)
  Sender: FDA-Public Use
  Company Number: None

PATIENT

DRUGS (2)
  1. WARFARIN [Suspect]
     Active Substance: WARFARIN
  2. PANTOPRAZOLE IV [Suspect]
     Active Substance: PANTOPRAZOLE SODIUM

REACTIONS (5)
  - Asthenia [None]
  - Haematemesis [None]
  - Dyspnoea [None]
  - International normalised ratio increased [None]
  - Faeces discoloured [None]

NARRATIVE: CASE EVENT DATE: 20160927
